FAERS Safety Report 24864095 (Version 1)
Quarter: 2025Q1

REPORT INFORMATION
  Report Type: Other
  Country: FR (occurrence: FR)
  Receive Date: 20250120
  Receipt Date: 20250120
  Transmission Date: 20250409
  Serious: Yes (Hospitalization)
  Sender: Atnahs Healthcare
  Company Number: FR-AFSSAPS-NY2024000334

PATIENT
  Age: 21 Year
  Sex: Female
  Weight: 48 kg

DRUGS (1)
  1. NAPROXEN [Suspect]
     Active Substance: NAPROXEN
     Indication: Odynophagia
     Route: 048
     Dates: start: 20231017, end: 20231019

REACTIONS (3)
  - Necrotising ulcerative gingivostomatitis [Recovered/Resolved]
  - Infectious mononucleosis [Recovered/Resolved]
  - Necrotising ulcerative gingivostomatitis [Recovered/Resolved]

NARRATIVE: CASE EVENT DATE: 20231019
